FAERS Safety Report 9187630 (Version 1)
Quarter: 2013Q1

REPORT INFORMATION
  Report Type: Spontaneous
  Country: US (occurrence: US)
  Receive Date: 20130325
  Receipt Date: 20130325
  Transmission Date: 20140127
  Serious: Yes (Other)
  Sender: FDA-Public Use
  Company Number: PHHY2013US006799

PATIENT
  Age: 32 Year
  Sex: Female
  Weight: 73 kg

DRUGS (2)
  1. GLEEVEC [Suspect]
     Dosage: FOETAL DRUG EXPOSURE VIA FATHER
  2. NECON [Concomitant]
     Indication: CONTRACEPTION
     Dosage: 1 UNK, UNK
     Route: 048
     Dates: end: 20130112

REACTIONS (2)
  - Abortion spontaneous [Unknown]
  - Exposure via father [Unknown]
